FAERS Safety Report 25166958 (Version 4)
Quarter: 2025Q4

REPORT INFORMATION
  Report Type: Spontaneous
  Country: US (occurrence: US)
  Receive Date: 20250407
  Receipt Date: 20251204
  Transmission Date: 20260118
  Serious: No
  Sender: IPSEN BIOPHARMACEUTICALS, INC.
  Company Number: US-IPSEN Group, Research and Development-2025-07088

PATIENT
  Age: 15 Year
  Sex: Male

DRUGS (2)
  1. SOHONOS [Suspect]
     Active Substance: PALOVAROTENE
     Indication: Fibrodysplasia ossificans progressiva
     Dosage: FREQUENCY: WEEKS 5-12 OF FLARE UP DOSING
     Route: 048
     Dates: start: 202311
  2. SOHONOS [Suspect]
     Active Substance: PALOVAROTENE
     Route: 048
     Dates: start: 202311

REACTIONS (3)
  - Condition aggravated [Recovered/Resolved]
  - Fall [Unknown]
  - Condition aggravated [Unknown]

NARRATIVE: CASE EVENT DATE: 20250301
